FAERS Safety Report 10924025 (Version 2)
Quarter: 2015Q2

REPORT INFORMATION
  Report Type: Spontaneous
  Country: US (occurrence: US)
  Receive Date: 20150318
  Receipt Date: 20150526
  Transmission Date: 20150821
  Serious: No
  Sender: FDA-Public Use
  Company Number: US-JNJFOC-20140405914

PATIENT
  Age: 65 Year
  Sex: Male

DRUGS (1)
  1. ITRACONAZOLE. [Suspect]
     Active Substance: ITRACONAZOLE
     Indication: PROSTATE CANCER METASTATIC
     Route: 048

REACTIONS (6)
  - Therapeutic response unexpected [Unknown]
  - Off label use [Unknown]
  - Hypoaldosteronism [Unknown]
  - Fatigue [Unknown]
  - Hyperbilirubinaemia [Recovered/Resolved]
  - Prescribed overdose [Unknown]
